FAERS Safety Report 14031576 (Version 1)
Quarter: 2017Q4

REPORT INFORMATION
  Report Type: Spontaneous
  Country: US (occurrence: US)
  Receive Date: 20171003
  Receipt Date: 20171003
  Transmission Date: 20180321
  Serious: Yes (Hospitalization)
  Sender: FDA-Public Use
  Company Number: US-JNJFOC-20170923572

PATIENT
  Age: 55 Year
  Sex: Female
  Weight: 83.2 kg

DRUGS (3)
  1. PACLITAXEL. [Suspect]
     Active Substance: PACLITAXEL
     Indication: BREAST CANCER METASTATIC
     Dosage: DAY 1, DAY 3 AND DAY 15 OF EACH CYCLE
     Route: 042
     Dates: start: 20170417, end: 2017
  2. MOTRIN [Suspect]
     Active Substance: IBUPROFEN
     Indication: PAIN
     Route: 048
     Dates: end: 2017
  3. MOTRIN [Suspect]
     Active Substance: IBUPROFEN
     Route: 048

REACTIONS (4)
  - Anaemia [Recovering/Resolving]
  - Hernia [Unknown]
  - Gastric ulcer [Recovering/Resolving]
  - Gastritis [Unknown]

NARRATIVE: CASE EVENT DATE: 201708
